FAERS Safety Report 18649925 (Version 1)
Quarter: 2020Q4

REPORT INFORMATION
  Report Type: Spontaneous
  Country: JP (occurrence: JP)
  Receive Date: 20201222
  Receipt Date: 20201222
  Transmission Date: 20210114
  Serious: Yes (Death)
  Sender: FDA-Public Use
  Company Number: JP-PFIZER INC-2020498326

PATIENT
  Age: 64 Year
  Sex: Male

DRUGS (11)
  1. MEROPENEM. [Suspect]
     Active Substance: MEROPENEM
     Indication: EVIDENCE BASED TREATMENT
     Dosage: 1 G, 2X/DAY (Q12 H)
     Route: 042
  2. CLINDAMYCIN PHOSPHATE. [Suspect]
     Active Substance: CLINDAMYCIN PHOSPHATE
     Indication: PNEUMONIA STAPHYLOCOCCAL
     Dosage: UNK
  3. LEVOFLOXACIN. [Suspect]
     Active Substance: LEVOFLOXACIN
     Indication: EVIDENCE BASED TREATMENT
     Dosage: 500 MG, (EVERY 48 HOUR)
     Route: 042
  4. LEVOFLOXACIN. [Suspect]
     Active Substance: LEVOFLOXACIN
     Indication: PNEUMONIA STAPHYLOCOCCAL
  5. HYDROCORTISONE SODIUM SUCCINATE [Suspect]
     Active Substance: HYDROCORTISONE SODIUM SUCCINATE
     Dosage: 200 MG, DAILY
  6. AMPICILLIN SODIUM/SULBACTAM SODIUM [Suspect]
     Active Substance: AMPICILLIN SODIUM\SULBACTAM SODIUM
     Indication: PNEUMONIA STAPHYLOCOCCAL
     Dosage: UNK
  7. LINEZOLID. [Suspect]
     Active Substance: LINEZOLID
     Indication: EVIDENCE BASED TREATMENT
     Dosage: 600 MG, 2X/DAY (Q12 H)
     Route: 042
  8. PITRESSIN [Concomitant]
     Active Substance: VASOPRESSIN
     Dosage: UNK
  9. NORADRENALINE (NORPINEPHRINE) [Concomitant]
     Active Substance: NOREPINEPHRINE
     Dosage: UNK
  10. POLYMYXIN B. [Concomitant]
     Active Substance: POLYMYXIN B
  11. PERAMIVIR [Suspect]
     Active Substance: PERAMIVIR
     Indication: EVIDENCE BASED TREATMENT
     Dosage: 600 MG, 1X/DAY
     Route: 042

REACTIONS (1)
  - Drug ineffective [Fatal]
